FAERS Safety Report 9360184 (Version 1)
Quarter: 2013Q2

REPORT INFORMATION
  Report Type: Spontaneous
  Country: US (occurrence: US)
  Receive Date: 20130621
  Receipt Date: 20130621
  Transmission Date: 20140414
  Serious: No
  Sender: FDA-Public Use
  Company Number: US-US-EMD SERONO, INC.-7041198

PATIENT
  Sex: Female
  Weight: 140 kg

DRUGS (10)
  1. REBIF [Suspect]
     Indication: MULTIPLE SCLEROSIS
     Route: 058
     Dates: start: 20101026
  2. PREDNISONE [Concomitant]
     Indication: PRODUCT USED FOR UNKNOWN INDICATION
  3. LEXAPRO [Concomitant]
     Indication: DEPRESSION
  4. FLEXERIL [Concomitant]
     Indication: PRODUCT USED FOR UNKNOWN INDICATION
  5. PYRIDOXINE [Concomitant]
     Indication: PRODUCT USED FOR UNKNOWN INDICATION
  6. NORVASC [Concomitant]
     Indication: PRODUCT USED FOR UNKNOWN INDICATION
  7. LOPID [Concomitant]
     Indication: PRODUCT USED FOR UNKNOWN INDICATION
  8. VITAMIN B-6 [Concomitant]
     Indication: NEUROPATHY PERIPHERAL
  9. ULTRAM [Concomitant]
     Indication: PAIN
  10. AMLODIPINE [Concomitant]
     Indication: BLOOD PRESSURE

REACTIONS (10)
  - Balance disorder [Unknown]
  - Flushing [Unknown]
  - Gait disturbance [Unknown]
  - Hypoaesthesia [Unknown]
  - Depressed mood [Unknown]
  - Night sweats [Unknown]
  - Pain [Unknown]
  - Injection site erythema [Unknown]
  - Injection site pain [Unknown]
  - Injection site bruising [Unknown]
